FAERS Safety Report 11208687 (Version 1)
Quarter: 2015Q2

REPORT INFORMATION
  Report Type: Report from Study
  Country: US (occurrence: US)
  Receive Date: 20150622
  Receipt Date: 20150622
  Transmission Date: 20150821
  Serious: No
  Sender: FDA-Public Use
  Company Number: US-ABBVIE-15P-163-1399583-00

PATIENT
  Age: 64 Year
  Sex: Male

DRUGS (2)
  1. MODERIBA [Concomitant]
     Active Substance: RIBAVIRIN
     Indication: HEPATITIS C
     Route: 048
  2. VIEKIRA PAK [Suspect]
     Active Substance: DASABUVIR\OMBITASVIR\PARITAPREVIR\RITONAVIR
     Indication: HEPATITIS C
     Route: 048
     Dates: start: 20150416

REACTIONS (3)
  - Irritability [Not Recovered/Not Resolved]
  - Fungal skin infection [Not Recovered/Not Resolved]
  - Nail disorder [Not Recovered/Not Resolved]

NARRATIVE: CASE EVENT DATE: 201504
